FAERS Safety Report 20063662 (Version 1)
Quarter: 2021Q4

REPORT INFORMATION
  Report Type: Spontaneous
  Country: US (occurrence: None)
  Receive Date: 20211112
  Receipt Date: 20211112
  Transmission Date: 20220303
  Serious: Yes (Disabling, Other)
  Sender: FDA-Public Use
  Company Number: None

PATIENT
  Age: 51 Year
  Sex: Female
  Weight: 74.25 kg

DRUGS (2)
  1. CIPROFLOXACIN HCL OPHTHALMIC [Suspect]
     Active Substance: CIPROFLOXACIN HYDROCHLORIDE
     Indication: Injury corneal
     Dosage: OTHER QUANTITY : 5 DROP(S);?FREQUENCY : EVERY 6 HOURS;?
     Route: 047
     Dates: start: 20211026, end: 20211109
  2. ADVIL [Concomitant]
     Active Substance: IBUPROFEN

REACTIONS (4)
  - Tendon rupture [None]
  - Gait inability [None]
  - Pain in extremity [None]
  - Pain in extremity [None]

NARRATIVE: CASE EVENT DATE: 20211109
